FAERS Safety Report 12931712 (Version 7)
Quarter: 2018Q4

REPORT INFORMATION
  Report Type: Report from Study
  Country: None (occurrence: TR)
  Receive Date: 20161110
  Receipt Date: 20181114
  Transmission Date: 20190204
  Serious: Yes (Hospitalization)
  Sender: FDA-Public Use
  Company Number: TR-ABBVIE-16K-161-1773735-00

PATIENT
  Age: 59 Year
  Sex: Male
  Weight: 65 kg

DRUGS (12)
  1. NERVOGIL [Concomitant]
     Indication: PARKINSON^S DISEASE
     Route: 048
     Dates: start: 2015
  2. RESOURCE GLUTAMIN [Concomitant]
     Indication: NUTRITIONAL SUPPLEMENTATION
     Route: 048
     Dates: start: 201612
  3. RESOURCE CILEKLI MAMA [Concomitant]
     Indication: NUTRITIONAL SUPPLEMENTATION
     Route: 048
     Dates: start: 201612
  4. PANOCER [Concomitant]
     Indication: GASTRIC DISORDER
  5. PROMEGA [Concomitant]
     Indication: NUTRITIONAL SUPPLEMENTATION
     Route: 048
     Dates: start: 201701
  6. DUODOPA [Suspect]
     Active Substance: CARBIDOPA\LEVODOPA
     Indication: PARKINSON^S DISEASE
     Dosage: MORNING DOSE:10ML, CONTINUOUS DOSE:4.8ML, EXTRA DOSE:1ML
     Route: 050
     Dates: start: 20161102
  7. MOTILIUM [Concomitant]
     Active Substance: DOMPERIDONE
     Indication: PARKINSON^S DISEASE
     Route: 048
     Dates: start: 2015, end: 2016
  8. PANOCER [Concomitant]
     Indication: PROPHYLAXIS
     Route: 048
     Dates: start: 2015, end: 2016
  9. COENZ QH [Concomitant]
     Indication: VITAMIN SUPPLEMENTATION
     Route: 048
     Dates: start: 201701
  10. UROREC [Concomitant]
     Active Substance: SILODOSIN
     Indication: PROSTATIC DISORDER
     Route: 048
     Dates: start: 2011
  11. STALEVO [Concomitant]
     Active Substance: CARBIDOPA\ENTACAPONE\LEVODOPA
     Indication: PRODUCT USED FOR UNKNOWN INDICATION
     Route: 048
     Dates: start: 2015
  12. GYREX [Concomitant]
     Indication: SLEEP DISORDER
     Dates: start: 201608

REACTIONS (7)
  - Nausea [Recovered/Resolved]
  - Hypertension [Not Recovered/Not Resolved]
  - Pneumonia aspiration [Recovered/Resolved]
  - Vomiting [Recovered/Resolved]
  - Bronchial secretion retention [Not Recovered/Not Resolved]
  - Cough [Not Recovered/Not Resolved]
  - Haemoptysis [Recovered/Resolved]

NARRATIVE: CASE EVENT DATE: 20161108
